FAERS Safety Report 16101854 (Version 1)
Quarter: 2019Q1

REPORT INFORMATION
  Report Type: Spontaneous
  Country: US (occurrence: US)
  Receive Date: 20190321
  Receipt Date: 20190321
  Transmission Date: 20190418
  Serious: Yes (Hospitalization)
  Sender: FDA-Public Use
  Company Number: US-ENDO PHARMACEUTICALS INC-2019-102943

PATIENT
  Age: 69 Year
  Sex: Female
  Weight: 89.36 kg

DRUGS (5)
  1. PREDNISONE. [Suspect]
     Active Substance: PREDNISONE
     Indication: PNEUMONIA
     Dosage: 4 PILLS FOR 4 DAYS, UNKNOWN
     Route: 048
     Dates: start: 201801, end: 201801
  2. PREDNISONE. [Suspect]
     Active Substance: PREDNISONE
     Dosage: 3 PILLS FOR 4 DAYS, UNKNOWN, UNKNOWN
     Route: 048
     Dates: start: 201801, end: 201801
  3. LEVAQUIN [Suspect]
     Active Substance: LEVOFLOXACIN
     Indication: PNEUMONIA
     Dosage: 750 MG, DAILY
     Route: 048
     Dates: start: 201801
  4. PREDNISONE. [Suspect]
     Active Substance: PREDNISONE
     Dosage: 2 PILLS FOR 4 DAYS UNKNOWN, UNKNOWN
     Route: 048
     Dates: start: 201801, end: 201801
  5. PREDNISONE. [Suspect]
     Active Substance: PREDNISONE
     Dosage: 1 PILL FOR 4 DAYS UNKNOWN, UNKNOWN
     Route: 048
     Dates: start: 201801, end: 201801

REACTIONS (1)
  - Intestinal obstruction [Recovered/Resolved with Sequelae]

NARRATIVE: CASE EVENT DATE: 201801
